FAERS Safety Report 21794323 (Version 1)
Quarter: 2022Q4

REPORT INFORMATION
  Report Type: Spontaneous
  Country: GB (occurrence: GB)
  Receive Date: 20221229
  Receipt Date: 20221229
  Transmission Date: 20230113
  Serious: No
  Sender: FDA-Public Use
  Company Number: None

PATIENT
  Age: 79 Year
  Sex: Male
  Weight: 78 kg

DRUGS (1)
  1. PAXLOVID [Suspect]
     Active Substance: NIRMATRELVIR\RITONAVIR
     Indication: Coronavirus infection
     Dosage: 150 MG
     Dates: start: 20221219, end: 20221222

REACTIONS (6)
  - Viral pharyngitis [Recovering/Resolving]
  - Oropharyngeal pain [Unknown]
  - Dysgeusia [Unknown]
  - Gastrointestinal pain [Unknown]
  - Diarrhoea [Unknown]
  - Incorrect product administration duration [Unknown]

NARRATIVE: CASE EVENT DATE: 20221201
